FAERS Safety Report 8308333-3 (Version None)
Quarter: 2012Q2

REPORT INFORMATION
  Report Type: 
  Country: None (occurrence: None)
  Receive Date: 20120424
  Receipt Date: 20120416
  Transmission Date: 20120825
  Serious: Yes (Other)
  Sender: FDA-Public Use
  Company Number: US-JNJFOC-20120407841

PATIENT
  Sex: Female
  Weight: 56.7 kg

DRUGS (3)
  1. TYLENOL (CAPLET) [Concomitant]
     Indication: BREAKTHROUGH PAIN
     Route: 048
  2. FENTANYL-100 [Suspect]
     Indication: PAIN
     Dosage: NDC#0781-7240-55
     Route: 062
     Dates: start: 20100101
  3. FENTANYL-100 [Suspect]
     Indication: PRODUCT USED FOR UNKNOWN INDICATION
     Dosage: NDC#0781-7240-55
     Route: 062
     Dates: end: 20100101

REACTIONS (6)
  - PRODUCT ADHESION ISSUE [None]
  - DRUG INTOLERANCE [None]
  - WRONG TECHNIQUE IN DRUG USAGE PROCESS [None]
  - CARDIAC DISORDER [None]
  - OSTEOPOROSIS [None]
  - TOOTH DISORDER [None]
